FAERS Safety Report 5120614-3 (Version None)
Quarter: 2006Q4

REPORT INFORMATION
  Report Type: 
  Country: None (occurrence: None)
  Receive Date: 20061002
  Receipt Date: 20060605
  Transmission Date: 20070319
  Serious: Yes (Hospitalization)
  Sender: FDA-Public Use
  Company Number: 2006001180

PATIENT
  Age: 66 Year
  Sex: Female

DRUGS (5)
  1. TARCEVA [Suspect]
     Indication: NEOPLASM MALIGNANT
     Dosage: 150 MG, ORAL
     Route: 048
     Dates: start: 20060504, end: 20060518
  2. FRACTAL (FLUVASTATIN) [Concomitant]
  3. CITALOPRAM HYDROBROMIDE [Concomitant]
  4. LEXOMIL (BROMAZEPAM) [Concomitant]
  5. VITAMIN B1/VITAMIN B6 [Concomitant]

REACTIONS (9)
  - HYPOXIA [None]
  - LUNG ADENOCARCINOMA METASTATIC [None]
  - LUNG INFILTRATION [None]
  - LYMPHANGITIS [None]
  - MUSCLE SPASMS [None]
  - OBSTRUCTIVE AIRWAYS DISORDER [None]
  - PROCEDURAL COMPLICATION [None]
  - PULMONARY VASCULITIS [None]
  - VITAL CAPACITY DECREASED [None]
